FAERS Safety Report 8955246 (Version 1)
Quarter: 2012Q4

REPORT INFORMATION
  Report Type: Report from Study
  Country: CA (occurrence: CA)
  Receive Date: 20121207
  Receipt Date: 20121207
  Transmission Date: 20130627
  Serious: Yes (Other)
  Sender: FDA-Public Use
  Company Number: CA-ROCHE-1165356

PATIENT
  Sex: Female

DRUGS (2)
  1. XOLAIR [Suspect]
     Indication: PRODUCT USED FOR UNKNOWN INDICATION
     Route: 058
  2. HYPERTENSIVE MEDICATION (UNK INGREDIENTS) [Concomitant]
     Indication: HYPERTENSION

REACTIONS (2)
  - Appendicitis [Unknown]
  - Nausea [Unknown]
